FAERS Safety Report 6356415-8 (Version None)
Quarter: 2009Q3

REPORT INFORMATION
  Report Type: 
  Country: None (occurrence: None)
  Receive Date: 20090915
  Receipt Date: 20090908
  Transmission Date: 20100115
  Serious: Yes (Other)
  Sender: FDA-Public Use
  Company Number: AR-ELI_LILLY_AND_COMPANY-AR200909001851

PATIENT
  Age: 37 Year
  Sex: Female

DRUGS (2)
  1. BYETTA [Suspect]
     Dosage: 10 UG, 2/D
     Route: 065
  2. NOVOMIX /03581901/ [Concomitant]

REACTIONS (3)
  - HAEMORRHAGE [None]
  - INTENTIONAL DRUG MISUSE [None]
  - OFF LABEL USE [None]
